FAERS Safety Report 13610517 (Version 4)
Quarter: 2017Q3

REPORT INFORMATION
  Report Type: Spontaneous
  Country: US (occurrence: US)
  Receive Date: 20170605
  Receipt Date: 20170707
  Transmission Date: 20171127
  Serious: No
  Sender: FDA-Public Use
  Company Number: US-GLAXOSMITHKLINE-US2017079800

PATIENT
  Sex: Male

DRUGS (2)
  1. CEFTIN [Suspect]
     Active Substance: CEFUROXIME AXETIL
     Indication: PRODUCT USED FOR UNKNOWN INDICATION
     Dosage: 250 MG, UNK
     Route: 048
     Dates: start: 20170104
  2. CEFTIN [Suspect]
     Active Substance: CEFUROXIME AXETIL
     Dosage: 125 MG, UNK

REACTIONS (3)
  - Product quality issue [Unknown]
  - Product preparation error [Unknown]
  - Underdose [Unknown]
